FAERS Safety Report 4441798-6 (Version None)
Quarter: 2004Q3

REPORT INFORMATION
  Report Type: 
  Country: None (occurrence: None)
  Receive Date: 20040901
  Receipt Date: 20040819
  Transmission Date: 20050211
  Serious: No
  Sender: FDA-Public Use
  Company Number: 2004CG00876

PATIENT
  Age: 76 Year
  Sex: Female
  Weight: 64 kg

DRUGS (7)
  1. NOLVADEX [Suspect]
     Indication: BREAST CANCER
     Dosage: 20 MG QD PO
     Route: 048
     Dates: start: 20010122, end: 20010323
  2. DILTIAZEM HYDROCHLORIDE [Concomitant]
  3. CORVASAL [Concomitant]
  4. PRAVASTATIN [Concomitant]
  5. KARDEGIC/FRA/ [Concomitant]
  6. ADANCOR [Concomitant]
  7. LANSOPRAZOLE [Concomitant]

REACTIONS (6)
  - ABDOMINAL PAIN [None]
  - ENDOMETRIAL HYPERTROPHY [None]
  - GENITAL DISCHARGE [None]
  - NAUSEA [None]
  - RETINAL ARTERY THROMBOSIS [None]
  - VOMITING [None]
